FAERS Safety Report 25766953 (Version 2)
Quarter: 2025Q3

REPORT INFORMATION
  Report Type: Report from Study
  Country: US (occurrence: US)
  Receive Date: 20250905
  Receipt Date: 20250927
  Transmission Date: 20251020
  Serious: Yes (Death, Other)
  Sender: ALEXION PHARMACEUTICALS
  Company Number: US-AstraZeneca-CH-00943471A

PATIENT
  Age: 76 Year
  Sex: Male
  Weight: 62.14 kg

DRUGS (2)
  1. DAPAGLIFLOZIN [Suspect]
     Active Substance: DAPAGLIFLOZIN
     Route: 065
  2. METOPROLOL TARTRATE [Suspect]
     Active Substance: METOPROLOL TARTRATE
     Route: 065

REACTIONS (23)
  - Metastases to pancreas [Fatal]
  - Nausea [Unknown]
  - Vomiting [Unknown]
  - Diverticulum [Unknown]
  - Urinary tract infection [Unknown]
  - Sciatica [Unknown]
  - Ulcer [Unknown]
  - Diarrhoea [Unknown]
  - Asthenia [Unknown]
  - Prostate cancer [Unknown]
  - Weight decreased [Unknown]
  - Hyperkalaemia [Unknown]
  - Gastrointestinal sounds abnormal [Unknown]
  - Fall [Unknown]
  - Blood sodium increased [Unknown]
  - Blood potassium [Unknown]
  - Blood glucose increased [Unknown]
  - Haemoglobin decreased [Unknown]
  - Red cell distribution width increased [Unknown]
  - Blood creatine abnormal [Unknown]
  - Abdominal hernia [Unknown]
  - Back pain [Unknown]
  - Osteoporosis [Unknown]
